FAERS Safety Report 8993421 (Version 2)
Quarter: 2013Q1

REPORT INFORMATION
  Report Type: Report from Study
  Country: US (occurrence: US)
  Receive Date: 20130102
  Receipt Date: 20130124
  Transmission Date: 20140127
  Serious: Yes (Other)
  Sender: FDA-Public Use
  Company Number: US-INCYTE CORPORATION-2012IN002664

PATIENT
  Age: 66 Year
  Sex: Male
  Weight: 126.53 kg

DRUGS (16)
  1. RUXOLITINIB [Suspect]
     Indication: MYELOFIBROSIS
     Dosage: 20 MG, BID
     Route: 048
     Dates: start: 20100414, end: 20100501
  2. INCB018424 (RUXOLITINIB) [Suspect]
     Dosage: 25 MG, BID
     Route: 048
     Dates: start: 20100502, end: 20120522
  3. INCB018424 (RUXOLITINIB) [Suspect]
     Dosage: 30 MG, BID
     Route: 048
     Dates: start: 20120523
  4. ALLOPURINOL [Concomitant]
     Indication: GOUT
     Dosage: 300 MG, QD
     Route: 048
     Dates: start: 20100706
  5. ALLOPURINOL [Concomitant]
     Indication: BLOOD URIC ACID INCREASED
  6. ASPIRIN [Concomitant]
     Dosage: 81 MG, QD
     Route: 048
     Dates: start: 20100422
  7. DYAZIDE [Concomitant]
     Dosage: 25 MG, QD
     Route: 048
     Dates: start: 20040726
  8. EFFEXOR XR [Concomitant]
     Dosage: 150 MG, QD
     Route: 048
     Dates: start: 20120504
  9. FLEXERIL [Concomitant]
     Indication: BACK PAIN
     Dosage: 10 MG, PRN
     Route: 048
     Dates: start: 20100609
  10. GUAIFENESIN DM [Concomitant]
     Indication: COUGH
     Dosage: 2 TSP Q4H, PRN
     Route: 048
     Dates: start: 20120509
  11. IBUPROFEN [Concomitant]
     Indication: PAIN
     Dosage: 600 MG, TID PRN
     Route: 048
     Dates: start: 20100413
  12. MOBIC [Concomitant]
     Dosage: 1 TAB QD
     Route: 048
     Dates: start: 20030915
  13. NIFEDIPINE ER [Concomitant]
     Dosage: 30 MG, QD
     Route: 048
     Dates: start: 20100706
  14. PEPCID [Concomitant]
     Dosage: 20 MG, QD HS
     Route: 048
     Dates: start: 20100616
  15. QUESTRAN [Concomitant]
     Dosage: AS DIRECTED
     Dates: start: 20030915
  16. RESTORIL [Concomitant]
     Dosage: 15 MG, QD HS
     Route: 048
     Dates: start: 20040726

REACTIONS (1)
  - Lymphoma [Not Recovered/Not Resolved]
